FAERS Safety Report 5975522-2 (Version None)
Quarter: 2008Q4

REPORT INFORMATION
  Report Type: 
  Country: None (occurrence: None)
  Receive Date: 20081202
  Receipt Date: 20080501
  Transmission Date: 20090506
  Serious: No
  Sender: FDA-Public Use
  Company Number: A0726400A

PATIENT
  Age: 54 Year
  Sex: Female
  Weight: 100 kg

DRUGS (2)
  1. AUGMENTIN '125' [Suspect]
     Route: 048
     Dates: start: 20080306
  2. PROVIGIL [Suspect]
     Dosage: 200MG PER DAY
     Route: 048
     Dates: start: 20080306

REACTIONS (4)
  - BACK PAIN [None]
  - DIARRHOEA [None]
  - DIZZINESS [None]
  - NAUSEA [None]
